FAERS Safety Report 25303760 (Version 2)
Quarter: 2025Q3

REPORT INFORMATION
  Report Type: Spontaneous
  Country: EU (occurrence: EU)
  Receive Date: 20250513
  Receipt Date: 20250803
  Transmission Date: 20251020
  Serious: Yes (Death, Other)
  Sender: ALEXION PHARMACEUTICALS
  Company Number: EU-AstraZeneca-CH-00866752A

PATIENT
  Age: 60 Year
  Sex: Female

DRUGS (1)
  1. LYNPARZA [Suspect]
     Active Substance: OLAPARIB
     Indication: Ovarian cancer
     Dates: start: 202401

REACTIONS (3)
  - Ovarian cancer [Fatal]
  - Malignant neoplasm progression [Fatal]
  - Neoplasm recurrence [Recovered/Resolved]

NARRATIVE: CASE EVENT DATE: 20250509
